FAERS Safety Report 6965262 (Version 3)
Quarter: 2016Q2

REPORT INFORMATION
  Report Type: Spontaneous
  Country: FR (occurrence: FR)
  Receive Date: 20090409
  Receipt Date: 20160621
  Transmission Date: 20160815
  Serious: Yes (Hospitalization)
  Sender: FDA-Public Use
  Company Number: FR-JNJFOC-20090400393

PATIENT
  Age: 58 Year
  Sex: Female

DRUGS (10)
  1. LERCAN [Concomitant]
     Active Substance: LERCANIDIPINE
  2. TAHOR [Concomitant]
     Active Substance: ATORVASTATIN CALCIUM
  3. IMODIUM [Suspect]
     Active Substance: LOPERAMIDE HYDROCHLORIDE
     Indication: GASTROENTERITIS
     Route: 048
     Dates: start: 20090130, end: 20090203
  4. CALCIDIA [Concomitant]
     Active Substance: CALCIUM POLYCARBOPHIL
  5. UN-ALPHA [Concomitant]
  6. LEVOTHYROX [Concomitant]
     Active Substance: LEVOTHYROXINE
  7. CARDENSIEL [Concomitant]
     Active Substance: BISOPROLOL FUMARATE
  8. DEBRIDAT [Suspect]
     Active Substance: TRIMEBUTINE MALEATE
     Indication: GASTROENTERITIS
     Route: 048
     Dates: start: 20090130, end: 20090203
  9. TRIATEC [Concomitant]
     Active Substance: RAMIPRIL
  10. PLAVIX [Concomitant]
     Active Substance: CLOPIDOGREL BISULFATE

REACTIONS (2)
  - Acute kidney injury [Recovering/Resolving]
  - Acute generalised exanthematous pustulosis [Recovered/Resolved]

NARRATIVE: CASE EVENT DATE: 20090202
